FAERS Safety Report 9821030 (Version 1)
Quarter: 2013Q4

REPORT INFORMATION
  Report Type: Spontaneous
  Country: US (occurrence: None)
  Receive Date: 20131028
  Receipt Date: 20131028
  Transmission Date: 20140711
  Serious: Yes (Hospitalization)
  Sender: FDA-Public Use
  Company Number: 2013US001225

PATIENT
  Age: 53 Year
  Sex: Male
  Weight: 74.8 kg

DRUGS (1)
  1. ICLUSIG [Suspect]
     Indication: CHRONIC MYELOID LEUKAEMIA
     Route: 048
     Dates: start: 20130213, end: 201302

REACTIONS (11)
  - Blast crisis in myelogenous leukaemia [None]
  - Red blood cell count decreased [None]
  - Blood magnesium decreased [None]
  - Anxiety [None]
  - Hypoaesthesia [None]
  - Pyrexia [None]
  - Tachycardia [None]
  - Blood potassium decreased [None]
  - Weight decreased [None]
  - Decreased appetite [None]
  - White blood cell count decreased [None]
